FAERS Safety Report 16886838 (Version 2)
Quarter: 2019Q4

REPORT INFORMATION
  Report Type: Spontaneous
  Country: US (occurrence: US)
  Receive Date: 20191004
  Receipt Date: 20191220
  Transmission Date: 20200122
  Serious: Yes (Death, Hospitalization, Other)
  Sender: FDA-Public Use
  Company Number: US-ASTRAZENECA-2019SF39357

PATIENT
  Age: 21765 Day
  Sex: Male
  Weight: 94 kg

DRUGS (59)
  1. COZAAR [Concomitant]
     Active Substance: LOSARTAN POTASSIUM
     Indication: BLOOD PRESSURE MEASUREMENT
     Dates: start: 200804
  2. CEPHALEXIN. [Concomitant]
     Active Substance: CEPHALEXIN
  3. NOVOLIN [Concomitant]
     Active Substance: INSULIN HUMAN
  4. ACETAMI/CODEIN [Concomitant]
  5. AZELASTINE. [Concomitant]
     Active Substance: AZELASTINE HYDROCHLORIDE
     Dates: start: 200605, end: 200610
  6. NYSTATIN. [Concomitant]
     Active Substance: NYSTATIN
     Dates: start: 200605, end: 200610
  7. NEXIUM [Suspect]
     Active Substance: ESOMEPRAZOLE MAGNESIUM
     Indication: GASTROOESOPHAGEAL REFLUX DISEASE
     Route: 048
     Dates: start: 20091104
  8. ACTOS [Concomitant]
     Active Substance: PIOGLITAZONE HYDROCHLORIDE
     Indication: DIABETES MELLITUS
  9. FLUTICASONE. [Concomitant]
     Active Substance: FLUTICASONE
     Indication: DRUG ABUSE
  10. PROCHLORPERAZIN [Concomitant]
     Active Substance: PROCHLORPERAZINE
  11. IMITREX [Concomitant]
     Active Substance: SUMATRIPTAN SUCCINATE
  12. DURADRIN [Concomitant]
     Active Substance: ACETAMINOPHEN\DICHLORALPHENAZONE\ISOMETHEPTENE MUCATE
  13. DIAZEPAM. [Concomitant]
     Active Substance: DIAZEPAM
  14. FEXOFENADINE [Concomitant]
     Active Substance: FEXOFENADINE HYDROCHLORIDE
  15. PRAVASTATIN. [Concomitant]
     Active Substance: PRAVASTATIN
  16. NEXIUM [Suspect]
     Active Substance: ESOMEPRAZOLE MAGNESIUM
     Indication: GASTROOESOPHAGEAL REFLUX DISEASE
     Dosage: 40.0MG UNKNOWN
     Route: 048
     Dates: start: 20110806
  17. HUMALOG [Concomitant]
     Active Substance: INSULIN LISPRO
     Indication: DIABETES MELLITUS
     Dates: start: 200605, end: 201501
  18. AMITRIPTYLIN [Concomitant]
     Active Substance: AMITRIPTYLINE
  19. ACULAR [Concomitant]
     Active Substance: KETOROLAC TROMETHAMINE
  20. FLOVENT DISKUS [Concomitant]
     Active Substance: FLUTICASONE PROPIONATE
  21. VALLUM [Concomitant]
  22. JANUVIA [Concomitant]
     Active Substance: SITAGLIPTIN PHOSPHATE
     Indication: DIABETES MELLITUS
     Dates: start: 200806, end: 201211
  23. PHENTERMINE. [Concomitant]
     Active Substance: PHENTERMINE
     Indication: DECREASED APPETITE
  24. SILVER SULFA [Concomitant]
  25. TRIAMCINOLON [Concomitant]
  26. REBETRON [Concomitant]
     Active Substance: INTERFERON ALFA-2B\RIBAVIRIN
  27. ZYRTEC [Concomitant]
     Active Substance: CETIRIZINE HYDROCHLORIDE
  28. VEETIDS [Concomitant]
     Active Substance: PENICILLIN V POTASSIUM
  29. ADVAIR DISKUS [Concomitant]
     Active Substance: FLUTICASONE PROPIONATE\SALMETEROL XINAFOATE
  30. NEXIUM [Suspect]
     Active Substance: ESOMEPRAZOLE MAGNESIUM
     Indication: GASTROOESOPHAGEAL REFLUX DISEASE
     Route: 048
  31. QUININE SULFATE. [Concomitant]
     Active Substance: QUININE SULFATE
     Indication: PARASITE ALLERGY
     Dates: start: 200605, end: 200610
  32. SIMVASTATIN. [Concomitant]
     Active Substance: SIMVASTATIN
     Indication: BLOOD CHOLESTEROL
     Dates: start: 200807, end: 201308
  33. SUMATRIPTAN. [Concomitant]
     Active Substance: SUMATRIPTAN
     Indication: MIGRAINE
  34. DIOVAN [Concomitant]
     Active Substance: VALSARTAN
  35. CODEIN [Concomitant]
     Active Substance: CODEINE
  36. GLUCOPHAGE [Concomitant]
     Active Substance: METFORMIN HYDROCHLORIDE
  37. CARVEDILOL. [Concomitant]
     Active Substance: CARVEDILOL
  38. GLIMEPIRIDE. [Concomitant]
     Active Substance: GLIMEPIRIDE
  39. VITAMIN D [Concomitant]
     Active Substance: VITAMIN D NOS
  40. VYTORIN [Concomitant]
     Active Substance: EZETIMIBE\SIMVASTATIN
     Indication: BLOOD CHOLESTEROL
     Dates: start: 200605, end: 200701
  41. TAMSULOSIN [Concomitant]
     Active Substance: TAMSULOSIN
  42. VIAGRA [Concomitant]
     Active Substance: SILDENAFIL CITRATE
     Dates: start: 200605, end: 200610
  43. AVODART [Concomitant]
     Active Substance: DUTASTERIDE
     Dates: start: 200605, end: 200610
  44. METOCLOPRAMIDE. [Concomitant]
     Active Substance: METOCLOPRAMIDE
     Indication: NAUSEA
     Dates: start: 200608
  45. ROXICET [Concomitant]
     Active Substance: ACETAMINOPHEN\OXYCODONE HYDROCHLORIDE
  46. JALYN [Concomitant]
     Active Substance: DUTASTERIDE\TAMSULOSIN HYDROCHLORIDE
  47. OXYCODONE [Concomitant]
     Active Substance: OXYCODONE
  48. ROCALTROL [Concomitant]
     Active Substance: CALCITRIOL
  49. IPRATROPIUM [Concomitant]
     Active Substance: IPRATROPIUM
     Dates: start: 200605, end: 200610
  50. MIDODRINE [Concomitant]
     Active Substance: MIDODRINE
     Dates: start: 200605, end: 200610
  51. NEXIUM [Suspect]
     Active Substance: ESOMEPRAZOLE MAGNESIUM
     Indication: GASTROOESOPHAGEAL REFLUX DISEASE
     Route: 048
     Dates: start: 200605, end: 201607
  52. ZESTRIL [Concomitant]
     Active Substance: LISINOPRIL
  53. HYDROCHLOROT [Concomitant]
     Active Substance: HYDROCHLOROTHIAZIDE
  54. CIPRO [Concomitant]
     Active Substance: CIPROFLOXACIN HYDROCHLORIDE
  55. NOVOFINE [Concomitant]
     Active Substance: INSULIN NOS
  56. VICTOZA [Concomitant]
     Active Substance: LIRAGLUTIDE
  57. NEPHROTOXINE [Concomitant]
  58. GABAPENTIN. [Concomitant]
     Active Substance: GABAPENTIN
     Dates: start: 200605, end: 200610
  59. PROAIR HFA [Concomitant]
     Active Substance: ALBUTEROL SULFATE
     Dates: start: 200605, end: 200610

REACTIONS (6)
  - Renal failure [Unknown]
  - Nephrogenic anaemia [Unknown]
  - End stage renal disease [Unknown]
  - Guillain-Barre syndrome [Fatal]
  - Acute kidney injury [Recovered/Resolved]
  - Chronic kidney disease [Unknown]

NARRATIVE: CASE EVENT DATE: 20161020
